FAERS Safety Report 10396290 (Version 1)
Quarter: 2014Q1

REPORT INFORMATION
  Report Type: Spontaneous
  Country: US (occurrence: None)
  Receive Date: 20130815
  Receipt Date: 20130815
  Transmission Date: 20141002
  Serious: Yes (Other)
  Sender: FDA-Public Use
  Company Number: ADR-2012-02245

PATIENT
  Age: 11 Year
  Sex: Male

DRUGS (1)
  1. LIORESAL INTRATHECAL [Suspect]
     Indication: MUSCLE SPASTICITY

REACTIONS (7)
  - Implant site infection [None]
  - Incision site complication [None]
  - Unevaluable event [None]
  - Staphylococcus test positive [None]
  - Pyrexia [None]
  - Swelling [None]
  - Erythema [None]
